FAERS Safety Report 10585487 (Version 1)
Quarter: 2014Q4

REPORT INFORMATION
  Report Type: Report from Study
  Country: AU (occurrence: AU)
  Receive Date: 20141114
  Receipt Date: 20141114
  Transmission Date: 20150529
  Serious: Yes (Hospitalization)
  Sender: FDA-Public Use
  Company Number: AU-ASTELLAS-2014US017037

PATIENT
  Age: 71 Year
  Sex: Male
  Weight: 108 kg

DRUGS (3)
  1. GOSERELIN [Concomitant]
     Active Substance: GOSERELIN
     Indication: PROSTATE CANCER
     Dosage: 10.8 MG, UNKNOWN FREQ.
     Route: 058
     Dates: start: 20140728
  2. MICARDIS [Concomitant]
     Active Substance: TELMISARTAN
     Indication: COLON CANCER
     Route: 048
     Dates: start: 20140807
  3. ENZALUTAMIDE [Suspect]
     Active Substance: ENZALUTAMIDE
     Indication: PROSTATE CANCER
     Route: 048
     Dates: start: 20140806, end: 20141102

REACTIONS (1)
  - Angina pectoris [Recovered/Resolved]

NARRATIVE: CASE EVENT DATE: 20141102
